FAERS Safety Report 12204719 (Version 2)
Quarter: 2016Q3

REPORT INFORMATION
  Report Type: Spontaneous
  Country: NZ (occurrence: NZ)
  Receive Date: 20160323
  Receipt Date: 20160722
  Transmission Date: 20161109
  Serious: Yes (Disabling)
  Sender: FDA-Public Use
  Company Number: NZ-APOTEX-2016AP007182

PATIENT
  Age: 68 Year
  Sex: Female

DRUGS (6)
  1. LANTUS [Concomitant]
     Active Substance: INSULIN GLARGINE
     Indication: DIABETES MELLITUS
     Dosage: 38 1DF X1 DAY
  2. DILTIAZEM. [Suspect]
     Active Substance: DILTIAZEM
     Indication: HYPERTENSION
     Dosage: 180 MG, A DAY
     Route: 048
     Dates: start: 20160307, end: 20160313
  3. DILTIAZEM. [Suspect]
     Active Substance: DILTIAZEM
     Dosage: 120 MG, A DAY
     Route: 048
     Dates: start: 201509, end: 20160313
  4. NOVORAPID [Concomitant]
     Active Substance: INSULIN ASPART
     Indication: DIABETES MELLITUS
     Dosage: 7 UNITS 3X PER DAY
     Route: 065
  5. LIPEX                              /00848101/ [Concomitant]
     Indication: PRODUCT USED FOR UNKNOWN INDICATION
     Dosage: 40 MG, X1 DAY
     Route: 065
  6. LOSEC [Concomitant]
     Active Substance: OMEPRAZOLE
     Indication: PRODUCT USED FOR UNKNOWN INDICATION
     Dosage: 20 MG, X1
     Route: 065

REACTIONS (4)
  - Palpitations [Unknown]
  - Constipation [Unknown]
  - Photophobia [Unknown]
  - Dry mouth [Unknown]

NARRATIVE: CASE EVENT DATE: 201509
